FAERS Safety Report 5763596-3 (Version None)
Quarter: 2008Q2

REPORT INFORMATION
  Report Type: 
  Country: None (occurrence: None)
  Receive Date: 20080610
  Receipt Date: 20080601
  Transmission Date: 20081010
  Serious: Yes (Other)
  Sender: FDA-Public Use
  Company Number: PHNU2008DE01964

PATIENT

DRUGS (1)
  1. VOLTAREN [Suspect]
     Dosage: UNK
     Dates: start: 20080531

REACTIONS (2)
  - ABDOMINAL PAIN [None]
  - GASTROINTESTINAL HAEMORRHAGE [None]
